FAERS Safety Report 10818228 (Version 2)
Quarter: 2019Q4

REPORT INFORMATION
  Report Type: Spontaneous
  Country: US (occurrence: US)
  Receive Date: 20150218
  Receipt Date: 20191021
  Transmission Date: 20200122
  Serious: Yes (Death, Other)
  Sender: FDA-Public Use
  Company Number: US-PFIZER INC-2015060367

PATIENT
  Age: 53 Year
  Sex: Male

DRUGS (3)
  1. VIAGRA [Suspect]
     Active Substance: SILDENAFIL CITRATE
     Indication: ERECTILE DYSFUNCTION
     Dosage: UNK, AS NEEDED
     Route: 048
     Dates: start: 200201
  2. VIAGRA [Suspect]
     Active Substance: SILDENAFIL CITRATE
     Dosage: UNK, 2 TO 3 TIMES A WEEK
     Route: 048
  3. VIAGRA [Suspect]
     Active Substance: SILDENAFIL CITRATE
     Dosage: UNK, 2 TO 3 TIMES A WEEK
     Route: 048
     Dates: start: 2000, end: 2009

REACTIONS (4)
  - Depression [Unknown]
  - Anxiety [Unknown]
  - Malignant melanoma [Fatal]
  - Neoplasm progression [Fatal]

NARRATIVE: CASE EVENT DATE: 200402
